FAERS Safety Report 8494111-1 (Version None)
Quarter: 2012Q3

REPORT INFORMATION
  Report Type: 
  Country: None (occurrence: None)
  Receive Date: 20120709
  Receipt Date: 20120628
  Transmission Date: 20120928
  Serious: Yes (Hospitalization)
  Sender: FDA-Public Use
  Company Number: GB-ACCORD-014001

PATIENT
  Age: 54 Year
  Sex: Male
  Weight: 86 kg

DRUGS (11)
  1. CYCLOSPORINE [Concomitant]
  2. SIMVASTATIN [Suspect]
     Indication: BLOOD CHOLESTEROL INCREASED
     Route: 048
     Dates: start: 20120515, end: 20120515
  3. PREDNISOLONE [Concomitant]
  4. DILTIAZEM HCL [Concomitant]
  5. COTRIM [Concomitant]
  6. MYCOPHENOLATE MOFETIL [Concomitant]
  7. ITRACONAZOLE [Concomitant]
  8. PENICILLIN V [Concomitant]
  9. OMEPRAZOLE [Concomitant]
  10. QUININE SULFATE [Concomitant]
     Indication: BLOOD CHOLESTEROL INCREASED
  11. ACYCLOVIR [Concomitant]

REACTIONS (2)
  - RHABDOMYOLYSIS [None]
  - HYPOKINESIA [None]
